FAERS Safety Report 10014704 (Version 1)
Quarter: 2014Q1

REPORT INFORMATION
  Report Type: Spontaneous
  Country: US (occurrence: US)
  Receive Date: 20140317
  Receipt Date: 20140317
  Transmission Date: 20141002
  Serious: Yes (Hospitalization)
  Sender: FDA-Public Use
  Company Number: US-BAYER-2014-038165

PATIENT
  Age: 23 Year
  Sex: Female
  Weight: 63.95 kg

DRUGS (3)
  1. YAZ [Suspect]
  2. IBUPROFEN [Concomitant]
  3. PERCOCET [Concomitant]
     Indication: PAIN

REACTIONS (2)
  - Pulmonary embolism [None]
  - Deep vein thrombosis [None]
